FAERS Safety Report 9908812 (Version 2)
Quarter: 2014Q2

REPORT INFORMATION
  Report Type: Spontaneous
  Country: NZ (occurrence: NZ)
  Receive Date: 20140219
  Receipt Date: 20140428
  Transmission Date: 20141212
  Serious: Yes (Death, Hospitalization, Other)
  Sender: FDA-Public Use
  Company Number: NZ-B.I. PHARMACEUTICALS,INC./RIDGEFIELD-2014-BI-07093AU

PATIENT
  Age: 81 Year
  Sex: Male
  Weight: 69 kg

DRUGS (1)
  1. PRADAXA [Suspect]
     Indication: ATRIAL FIBRILLATION
     Dosage: 220 MG
     Route: 065
     Dates: start: 20130430

REACTIONS (9)
  - Escherichia sepsis [Fatal]
  - Rectal haemorrhage [Fatal]
  - Abdominal pain [Unknown]
  - Diarrhoea [Unknown]
  - Respiratory failure [Unknown]
  - Infectious colitis [Unknown]
  - Rectal haemorrhage [Unknown]
  - Coagulopathy [Unknown]
  - Pneumoperitoneum [Unknown]
